FAERS Safety Report 5235385-X (Version None)
Quarter: 2007Q1

REPORT INFORMATION
  Report Type: 
  Country: None (occurrence: None)
  Receive Date: 20070212
  Receipt Date: 20070206
  Transmission Date: 20070707
  Serious: Yes (Life-Threatening, Hospitalization)
  Sender: FDA-Public Use
  Company Number: 2007PK00197

PATIENT
  Age: 22916 Day
  Sex: Female

DRUGS (4)
  1. NOLVADEX [Suspect]
     Indication: BREAST CANCER
     Route: 048
     Dates: start: 20030925, end: 20060619
  2. PANTOPRAZOLE SODIUM [Concomitant]
     Indication: PROPHYLAXIS AGAINST GASTROINTESTINAL ULCER
     Route: 048
  3. VASONIT RETARD [Concomitant]
     Indication: VASODILATION PROCEDURE
     Route: 048
  4. SINTROM [Concomitant]
     Indication: ANTICOAGULANT THERAPY

REACTIONS (2)
  - CEREBELLAR INFARCTION [None]
  - PULMONARY EMBOLISM [None]
